FAERS Safety Report 22650347 (Version 1)
Quarter: 2023Q2

REPORT INFORMATION
  Report Type: Spontaneous
  Country: US (occurrence: US)
  Receive Date: 20230628
  Receipt Date: 20230628
  Transmission Date: 20230721
  Serious: No
  Sender: FDA-Public Use
  Company Number: US-MAYNE PHARMA-2022TMD00837

PATIENT
  Age: 76 Year
  Sex: Female

DRUGS (3)
  1. IMVEXXY [Suspect]
     Active Substance: ESTRADIOL
     Indication: Atrophic vulvovaginitis
     Dosage: UNK UNK, 2X/WEEK
  2. IMVEXXY [Suspect]
     Active Substance: ESTRADIOL
     Indication: Vulvovaginal dryness
     Dosage: 1 DOSAGE UNIT, EVERY 2 TO 3 WEEKS
  3. IMVEXXY [Suspect]
     Active Substance: ESTRADIOL
     Dosage: 1 DOSAGE UNIT, EVERY 2 TO 3 WEEKS

REACTIONS (7)
  - Abdominal distension [Unknown]
  - Hair growth abnormal [Unknown]
  - Feeling cold [Not Recovered/Not Resolved]
  - Memory impairment [Not Recovered/Not Resolved]
  - Blood pressure increased [Not Recovered/Not Resolved]
  - Dysuria [Not Recovered/Not Resolved]
  - Intentional product misuse [Not Recovered/Not Resolved]
